FAERS Safety Report 16456297 (Version 1)
Quarter: 2019Q2

REPORT INFORMATION
  Report Type: Spontaneous
  Country: US (occurrence: US)
  Receive Date: 20190620
  Receipt Date: 20190620
  Transmission Date: 20190711
  Serious: No
  Sender: FDA-Public Use
  Company Number: US-009507513-1905USA010783

PATIENT
  Age: 90 Year
  Sex: Male

DRUGS (11)
  1. LOVASTATIN. [Concomitant]
     Active Substance: LOVASTATIN
  2. TERAZOSIN [Concomitant]
     Active Substance: TERAZOSIN\TERAZOSIN HYDROCHLORIDE
  3. BELSOMRA [Suspect]
     Active Substance: SUVOREXANT
     Indication: INSOMNIA
     Dosage: ONCE A DAY, PILL
     Route: 048
     Dates: start: 201904, end: 2019
  4. FINASTERIDE. [Concomitant]
     Active Substance: FINASTERIDE
  5. ECHINACEA (UNSPECIFIED) [Concomitant]
  6. LISINOPRIL. [Concomitant]
     Active Substance: LISINOPRIL
  7. BELSOMRA [Suspect]
     Active Substance: SUVOREXANT
     Dosage: ONCE A DAY, PILL
     Route: 048
     Dates: start: 2019
  8. TRAZODONE HYDROCHLORIDE. [Concomitant]
     Active Substance: TRAZODONE HYDROCHLORIDE
  9. MELATONIN [Concomitant]
     Active Substance: MELATONIN
  10. NIFEDIPINE. [Concomitant]
     Active Substance: NIFEDIPINE
  11. GARLIC. [Concomitant]
     Active Substance: GARLIC

REACTIONS (2)
  - Insomnia [Not Recovered/Not Resolved]
  - Drug ineffective [Not Recovered/Not Resolved]

NARRATIVE: CASE EVENT DATE: 20190515
